FAERS Safety Report 8662098 (Version 3)
Quarter: 2012Q4

REPORT INFORMATION
  Report Type: Report from Study
  Country: JP (occurrence: JP)
  Receive Date: 20120712
  Receipt Date: 20120905
  Transmission Date: 20130627
  Serious: Yes (Hospitalization, Other)
  Sender: FDA-Public Use
  Company Number: JP-JNJFOC-20120704626

PATIENT
  Age: 82 None
  Sex: Female
  Weight: 49 kg

DRUGS (1)
  1. REMINYL [Suspect]
     Indication: DEMENTIA ALZHEIMER^S TYPE
     Route: 048
     Dates: start: 20120215, end: 20120305

REACTIONS (1)
  - Ileus [Unknown]
